FAERS Safety Report 5708520-4 (Version None)
Quarter: 2008Q2

REPORT INFORMATION
  Report Type: 
  Country: None (occurrence: None)
  Receive Date: 20080417
  Receipt Date: 20080407
  Transmission Date: 20081010
  Serious: Yes (Hospitalization)
  Sender: FDA-Public Use
  Company Number: GB-PFIZER INC-2008031074

PATIENT
  Sex: Female
  Weight: 132 kg

DRUGS (9)
  1. CLINDAMYCIN HYDROCHLORIDE [Suspect]
     Indication: SKIN DISORDER
     Route: 048
  2. RIFAMPICIN [Interacting]
     Indication: SKIN DISORDER
     Route: 048
  3. QUETIAPINE FUMARATE [Interacting]
     Indication: PSYCHOTIC DISORDER
     Route: 048
  4. QUETIAPINE FUMARATE [Interacting]
     Indication: SCHIZOPHRENIA
  5. FLUOXETINE [Concomitant]
     Indication: DEPRESSION
     Dosage: DAILY DOSE:40MG
     Route: 048
  6. HALOPERIDOL [Concomitant]
     Indication: MANIA
     Dosage: DAILY DOSE:15MG
     Route: 048
  7. ORPHENADRINE CITRATE [Concomitant]
     Dosage: DAILY DOSE:100MG
     Route: 048
  8. PROZAC [Concomitant]
  9. SENNA [Concomitant]
     Indication: CONSTIPATION
     Route: 048

REACTIONS (2)
  - DRUG INTERACTION [None]
  - MENTAL IMPAIRMENT [None]
